FAERS Safety Report 8598525 (Version 3)
Quarter: 2014Q1

REPORT INFORMATION
  Report Type: Spontaneous
  Country: US (occurrence: US)
  Receive Date: 20120605
  Receipt Date: 20140124
  Transmission Date: 20141002
  Serious: Yes (Disabling, Other)
  Sender: FDA-Public Use
  Company Number: US-ASTRAZENECA-2012SE35753

PATIENT
  Age: 47 Year
  Sex: Female
  Weight: 83.9 kg

DRUGS (24)
  1. NEXIUM [Suspect]
     Indication: GASTROOESOPHAGEAL REFLUX DISEASE
     Route: 048
     Dates: start: 20040402
  2. NEXIUM [Suspect]
     Indication: GASTROOESOPHAGEAL REFLUX DISEASE
     Route: 048
     Dates: start: 2007
  3. PRILOSEC OTC [Suspect]
     Route: 048
  4. PREVACID OTC [Concomitant]
  5. ZANTAC [Concomitant]
     Dates: start: 2002
  6. ROLAIDS [Concomitant]
  7. PEPTO-BISMOL [Concomitant]
  8. ALBUTEROL [Concomitant]
     Indication: BRONCHITIS CHRONIC
  9. AMITRIPTYLINE [Concomitant]
     Indication: SLEEP DISORDER
  10. AMLODIPINE BESYLATE [Concomitant]
     Indication: HYPERTENSION
  11. METOPROLOL SUCCINATE [Concomitant]
     Indication: HYPERTENSION
  12. LORITAB [Concomitant]
     Indication: PAIN
  13. TIZANIDINE [Concomitant]
     Indication: MUSCLE RELAXANT THERAPY
  14. MORPHINE SULFATE [Concomitant]
     Indication: PAIN
  15. VENTOLIN HFA [Concomitant]
     Indication: DYSPNOEA
  16. OSCAL [Concomitant]
     Indication: BONE DISORDER
  17. FLUTICASONT PROPIONATE [Concomitant]
     Indication: DYSPNOEA
  18. CITALOPRAM [Concomitant]
     Indication: DEPRESSION
  19. TUMS [Concomitant]
     Dates: start: 1997, end: 2007
  20. VITAMIN D [Concomitant]
     Indication: OSTEOGENESIS IMPERFECTA
  21. VITAMIN C [Concomitant]
  22. VITAMIN B12 [Concomitant]
  23. BUPROPION [Concomitant]
     Route: 048
     Dates: start: 20031010
  24. PROMETHAZINE [Concomitant]
     Dates: start: 20031031

REACTIONS (14)
  - Fall [Unknown]
  - Ill-defined disorder [Unknown]
  - Neoplasm malignant [Unknown]
  - Multiple fractures [Unknown]
  - Ankle fracture [Unknown]
  - Bone disorder [Unknown]
  - Bone pain [Unknown]
  - Osteoporosis [Unknown]
  - Calcium deficiency [Unknown]
  - Arthritis [Unknown]
  - Rheumatoid arthritis [Unknown]
  - Vitamin D deficiency [Unknown]
  - Liver disorder [Unknown]
  - Depression [Unknown]
